FAERS Safety Report 5368179-5 (Version None)
Quarter: 2007Q2

REPORT INFORMATION
  Report Type: 
  Country: None (occurrence: None)
  Receive Date: 20070625
  Receipt Date: 20070612
  Transmission Date: 20071010
  Serious: Yes (Hospitalization, Other)
  Sender: FDA-Public Use
  Company Number: PHHO2007BR09205

PATIENT
  Age: 78 Year
  Sex: Female
  Weight: 90 kg

DRUGS (4)
  1. DIOVAN [Suspect]
     Indication: HYPERTENSION
     Dosage: 160 MG/DAILY
     Route: 048
  2. AMLODIPINE BESYLATE [Concomitant]
  3. CILOSTAZOL [Concomitant]
  4. CLONIDINE HCL [Concomitant]

REACTIONS (8)
  - ABASIA [None]
  - BLOOD PRESSURE INCREASED [None]
  - CEREBELLAR TUMOUR [None]
  - DIPLEGIA [None]
  - DYSARTHRIA [None]
  - PARESIS [None]
  - SOMNOLENCE [None]
  - TUMOUR EXCISION [None]
